FAERS Safety Report 6568487-6 (Version None)
Quarter: 2010Q1

REPORT INFORMATION
  Report Type: 
  Country: None (occurrence: None)
  Receive Date: 20100203
  Receipt Date: 20100127
  Transmission Date: 20100710
  Serious: Yes (Other)
  Sender: FDA-Public Use
  Company Number: B0629275A

PATIENT
  Sex: Female

DRUGS (6)
  1. REQUIP [Suspect]
     Indication: PARKINSON'S DISEASE
     Route: 048
     Dates: start: 20060215
  2. ASPIRIN [Concomitant]
     Route: 065
  3. BETAHISTINE HYDROCHLORIDE [Concomitant]
     Route: 065
  4. NICORANDIL [Concomitant]
     Route: 065
  5. BENDROFLUAZIDE [Concomitant]
     Route: 065
  6. BISOPROLOL [Concomitant]
     Route: 065

REACTIONS (2)
  - HALLUCINATION [None]
  - SLEEP DISORDER [None]
